FAERS Safety Report 7589489-7 (Version None)
Quarter: 2011Q3

REPORT INFORMATION
  Report Type: 
  Country: None (occurrence: None)
  Receive Date: 20110705
  Receipt Date: 20110620
  Transmission Date: 20111222
  Serious: Yes (Hospitalization)
  Sender: FDA-Public Use
  Company Number: DE-ROCHE-784761

PATIENT
  Sex: Female
  Weight: 47.5 kg

DRUGS (4)
  1. CAPECITABINE [Suspect]
     Dosage: PROTOCOL REGIME: 2X800MG/M2 DAYS1-14 FOLLOWED BY 1 WEEK PAUSE. LAST DOES PRIOR TO SAE 17 JUNE 2011.
     Route: 048
     Dates: start: 20110321
  2. BEVACIZUMAB [Suspect]
     Dosage: DAY 1 OF 21. LAST DOSE PRIOR TO SAE 03 JUNE 2011
     Route: 042
     Dates: start: 20110321
  3. IRINOTECAN HYDROCHLORIDE [Suspect]
     Dosage: FORM INFUSION. DAY1 OF 21. LAST DOSE PRIOR TO SAE 03 JUNE 2011.
     Route: 042
     Dates: start: 20110321
  4. CAPECITABINE [Suspect]
     Dosage: 2X400MG/M2, DAY1-14 FOLLOWED BY 1 WEEK PAUSE
     Route: 048
     Dates: start: 20110624

REACTIONS (1)
  - GENERAL PHYSICAL HEALTH DETERIORATION [None]
